FAERS Safety Report 20962164 (Version 2)
Quarter: 2022Q2

REPORT INFORMATION
  Report Type: Spontaneous
  Country: CN (occurrence: None)
  Receive Date: 20220615
  Receipt Date: 20220623
  Transmission Date: 20220721
  Serious: Yes (Other)
  Sender: FDA-Public Use
  Company Number: 2022A219733

PATIENT
  Age: 65 Year
  Sex: Male

DRUGS (2)
  1. LYNPARZA [Suspect]
     Active Substance: OLAPARIB
     Indication: Prostate cancer
     Route: 048
     Dates: start: 20220601
  2. AMIKELONG [Concomitant]

REACTIONS (9)
  - Pleural effusion [Unknown]
  - Left atrial enlargement [Unknown]
  - Aortic valve incompetence [Unknown]
  - Blood pressure increased [Unknown]
  - Left ventricular dysfunction [Unknown]
  - Mobility decreased [Unknown]
  - Urine analysis abnormal [Unknown]
  - Dyspnoea [Unknown]
  - Productive cough [Unknown]

NARRATIVE: CASE EVENT DATE: 20220606
